FAERS Safety Report 4474958-9 (Version None)
Quarter: 2004Q3

REPORT INFORMATION
  Report Type: 
  Country: None (occurrence: None)
  Receive Date: 20040923
  Receipt Date: 20040729
  Transmission Date: 20050211
  Serious: Yes (Hospitalization, Other)
  Sender: FDA-Public Use
  Company Number: USA040774139

PATIENT
  Age: 77 Year
  Sex: Female

DRUGS (25)
  1. FORTEO [Suspect]
     Indication: OSTEOPOROSIS
     Dosage: 20 UG DAY
     Dates: start: 20040501, end: 20040722
  2. DILTIAZEM [Concomitant]
  3. COZAAR [Concomitant]
  4. HYDRALAZINE HCL [Concomitant]
  5. ATELEC (CILNIDIPINE) [Concomitant]
  6. NITROQUICK (GLYCERYL TRINITRATE) [Concomitant]
  7. CATAPRES [Concomitant]
  8. ISORDIL [Concomitant]
  9. TICLID [Concomitant]
  10. ASPIRIN [Concomitant]
  11. ZOCOR [Concomitant]
  12. PRILOSEC [Concomitant]
  13. SINGULAIR (MONTELUKAST) [Concomitant]
  14. ALLEGRA [Concomitant]
  15. ALBUTEROL [Concomitant]
  16. ATROVENT [Concomitant]
  17. PULMICORT [Concomitant]
  18. ADVAIR DISKUS 100/50 [Concomitant]
  19. FLONASE [Concomitant]
  20. ATROVENT [Concomitant]
  21. POTASSIUM [Concomitant]
  22. IRON SUPPLEMENT [Concomitant]
  23. MULTI-VITAMIN [Concomitant]
  24. MULTIVITAMIN [Concomitant]
  25. CALCIUM [Concomitant]

REACTIONS (3)
  - ANGINA PECTORIS [None]
  - HYPERTENSION [None]
  - RHINORRHOEA [None]
